FAERS Safety Report 9769816 (Version 2)
Quarter: 2013Q4

REPORT INFORMATION
  Report Type: Spontaneous
  Country: US (occurrence: US)
  Receive Date: 20131218
  Receipt Date: 20131218
  Transmission Date: 20140711
  Serious: No
  Sender: FDA-Public Use
  Company Number: US-VERTEX PHARMACEUTICALS INC-AE-2011-000416

PATIENT
  Age: 49 Year
  Sex: Female
  Weight: 93.18 kg

DRUGS (6)
  1. INCIVEK [Suspect]
     Indication: HEPATITIS C
     Dates: start: 20110610
  2. PEGINTERFERON [Concomitant]
     Indication: HEPATITIS C
     Dates: start: 20110610
  3. RIBAVIRIN [Concomitant]
     Indication: HEPATITIS C
     Dates: start: 20110610
  4. CLONAZEPAM [Concomitant]
     Indication: SLEEP DISORDER
     Dates: start: 201105
  5. LAMOTRIGINE [Concomitant]
     Indication: SLEEP DISORDER
     Dates: start: 2007
  6. NIZATIDINE [Concomitant]
     Indication: DYSPEPSIA
     Dates: start: 201105

REACTIONS (2)
  - Rash maculo-papular [Not Recovered/Not Resolved]
  - Pruritus [Not Recovered/Not Resolved]
